FAERS Safety Report 12370874 (Version 2)
Quarter: 2016Q2

REPORT INFORMATION
  Report Type: Spontaneous
  Country: CH (occurrence: CH)
  Receive Date: 20160516
  Receipt Date: 20160630
  Transmission Date: 20160815
  Serious: Yes (Hospitalization, Other)
  Sender: FDA-Public Use
  Company Number: CH-009507513-1605CHE005290

PATIENT
  Age: 57 Year
  Sex: Male
  Weight: 81 kg

DRUGS (1)
  1. KEYTRUDA [Suspect]
     Active Substance: PEMBROLIZUMAB
     Indication: THYMOMA MALIGNANT RECURRENT
     Dosage: 50 MG, QOW
     Route: 042
     Dates: start: 20160129, end: 20160314

REACTIONS (9)
  - Autoimmune disorder [Unknown]
  - Gastrointestinal toxicity [Recovering/Resolving]
  - Product use issue [Unknown]
  - Oesophagitis [Unknown]
  - Skin toxicity [Recovering/Resolving]
  - Oral toxicity [Recovering/Resolving]
  - Skin reaction [Recovering/Resolving]
  - Stomatitis [Unknown]
  - Adverse drug reaction [Unknown]

NARRATIVE: CASE EVENT DATE: 20160129
